FAERS Safety Report 8181645-2 (Version None)
Quarter: 2012Q1

REPORT INFORMATION
  Report Type: 
  Country: None (occurrence: None)
  Receive Date: 20120301
  Receipt Date: 20120301
  Transmission Date: 20120608
  Serious: No
  Sender: FDA-Public Use
  Company Number: None

PATIENT
  Age: 79 Year
  Sex: Female
  Weight: 68.0396 kg

DRUGS (1)
  1. BONIVA [Suspect]
     Indication: OSTEOPOROSIS
     Dosage: 1 PILL/MONTH
     Dates: start: 20040101, end: 20080101

REACTIONS (3)
  - OSTEOMYELITIS [None]
  - IMPAIRED HEALING [None]
  - OSTEONECROSIS [None]
